FAERS Safety Report 15846677 (Version 4)
Quarter: 2019Q2

REPORT INFORMATION
  Report Type: Report from Study
  Country: DE (occurrence: DE)
  Receive Date: 20190121
  Receipt Date: 20190624
  Transmission Date: 20190711
  Serious: Yes (Hospitalization)
  Sender: FDA-Public Use
  Company Number: DE-ROCHE-2245928

PATIENT
  Age: 75 Year
  Sex: Female
  Weight: 55 kg

DRUGS (12)
  1. IBUPROFEN. [Concomitant]
     Active Substance: IBUPROFEN
     Route: 065
     Dates: start: 20180816
  2. DUOGALEN [Concomitant]
     Indication: PRURITUS
     Route: 061
     Dates: start: 20181016
  3. OPTIDERM [POLIDOCANOL;UREA] [Concomitant]
     Indication: ERYTHEMA
  4. DUOGALEN [Concomitant]
     Indication: ERYTHEMA
  5. OPTIDERM [POLIDOCANOL;UREA] [Concomitant]
     Indication: PRURITUS
     Route: 061
     Dates: start: 20181016
  6. COBIMETINIB. [Suspect]
     Active Substance: COBIMETINIB
     Indication: MALIGNANT MELANOMA
     Dosage: DATE OF MOST RECENT DOSE (60 MG) OF COBIMETINIB?PRIOR TO AE ONSET 20/NOV/2018
     Route: 048
     Dates: start: 20180719
  7. PANTOPRAZOL [PANTOPRAZOLE] [Concomitant]
     Active Substance: PANTOPRAZOLE
     Route: 065
     Dates: start: 20180816
  8. INNOHEP [Concomitant]
     Active Substance: TINZAPARIN SODIUM
     Route: 065
     Dates: start: 20190225
  9. CLEXANE [Concomitant]
     Active Substance: ENOXAPARIN SODIUM
     Route: 065
     Dates: start: 20190124, end: 20190224
  10. ATEZOLIZUMAB. [Suspect]
     Active Substance: ATEZOLIZUMAB
     Indication: MALIGNANT MELANOMA
     Dosage: DATE OF MOST RECENT DOSE OF ATEZOLIZUMAB?PRIOR TO AE ONSET 06/NOV/2018
     Route: 042
     Dates: start: 20180719
  11. LEVOFLOXACIN. [Concomitant]
     Active Substance: LEVOFLOXACIN
     Route: 065
     Dates: start: 20180813
  12. DIPROSONE [Concomitant]
     Active Substance: BETAMETHASONE DIPROPIONATE
     Indication: ALOPECIA
     Route: 065
     Dates: start: 20181207

REACTIONS (1)
  - Renal failure [Not Recovered/Not Resolved]

NARRATIVE: CASE EVENT DATE: 20181120
